FAERS Safety Report 25398972 (Version 1)
Quarter: 2025Q2

REPORT INFORMATION
  Report Type: Spontaneous
  Country: HU (occurrence: HU)
  Receive Date: 20250605
  Receipt Date: 20250605
  Transmission Date: 20250716
  Serious: Yes (Other)
  Sender: NOVARTIS
  Company Number: HU-002147023-NVSC2025HU088581

PATIENT
  Age: 55 Year
  Sex: Male

DRUGS (1)
  1. SECUKINUMAB [Suspect]
     Active Substance: SECUKINUMAB
     Indication: Product used for unknown indication
     Route: 065
     Dates: start: 202412

REACTIONS (2)
  - Crohn^s disease [Unknown]
  - Diarrhoea [Unknown]
